FAERS Safety Report 9408795 (Version 1)
Quarter: 2013Q3

REPORT INFORMATION
  Report Type: Report from Study
  Country: JP (occurrence: JP)
  Receive Date: 20130719
  Receipt Date: 20130719
  Transmission Date: 20140515
  Serious: Yes (Other)
  Sender: FDA-Public Use
  Company Number: JP-ROCHE-1248743

PATIENT
  Sex: 0

DRUGS (4)
  1. BEVACIZUMAB [Suspect]
     Indication: NON-SMALL CELL LUNG CANCER METASTATIC
     Route: 065
  2. CISPLATIN [Suspect]
     Indication: NON-SMALL CELL LUNG CANCER METASTATIC
     Dosage: ON DAY 1 OF A 21-DAY CYCLE
     Route: 065
  3. DOCETAXEL [Suspect]
     Indication: NON-SMALL CELL LUNG CANCER METASTATIC
     Dosage: ON DAY 1 OF A 21-DAY CYCLE
     Route: 065
  4. PEMETREXED [Suspect]
     Indication: NON-SMALL CELL LUNG CANCER METASTATIC
     Route: 065

REACTIONS (2)
  - Febrile neutropenia [Unknown]
  - Bone marrow failure [Unknown]
